FAERS Safety Report 14794919 (Version 1)
Quarter: 2018Q2

REPORT INFORMATION
  Report Type: Spontaneous
  Country: NL (occurrence: NL)
  Receive Date: 20180423
  Receipt Date: 20180423
  Transmission Date: 20180711
  Serious: Yes (Other)
  Sender: FDA-Public Use
  Company Number: NL-SHIRE-NL201814670

PATIENT

DRUGS (3)
  1. HUMAN NORMAL IMMUNOGLOBULIN [Suspect]
     Active Substance: HUMAN IMMUNOGLOBULIN G
     Indication: HYPOGAMMAGLOBULINAEMIA
     Dosage: 365 MG/KG, EVERY 28 DAYS
     Route: 042
  2. HIZENTRA [Suspect]
     Active Substance: HUMAN IMMUNOGLOBULIN G
     Indication: HYPOGAMMAGLOBULINAEMIA
     Dosage: 320 MG/KG, EVERY 28 DAYS
     Route: 058
  3. AMOXYCILLIN                        /00249601/ [Suspect]
     Active Substance: AMOXICILLIN
     Indication: HYPOGAMMAGLOBULINAEMIA
     Dosage: 500 MG, BID
     Route: 048

REACTIONS (1)
  - Drug ineffective [Unknown]
